FAERS Safety Report 7167112-3 (Version None)
Quarter: 2010Q4

REPORT INFORMATION
  Report Type: 
  Country: None (occurrence: None)
  Receive Date: 20101216
  Receipt Date: 20101207
  Transmission Date: 20110411
  Serious: Yes (Hospitalization, Other)
  Sender: FDA-Public Use
  Company Number: DE-NOVEN-10DE001429

PATIENT
  Age: 51 Year
  Sex: Male

DRUGS (2)
  1. PAROXETINE [Suspect]
     Indication: PRODUCT USED FOR UNKNOWN INDICATION
     Dosage: 60 MG, UNKNOWN
  2. UNKNOWN [Concomitant]

REACTIONS (5)
  - ANXIETY [None]
  - DISSOCIATION [None]
  - IMPULSIVE BEHAVIOUR [None]
  - SKIN BURNING SENSATION [None]
  - SUICIDAL IDEATION [None]
